FAERS Safety Report 18111175 (Version 2)
Quarter: 2020Q3

REPORT INFORMATION
  Report Type: Spontaneous
  Country: CN (occurrence: CN)
  Receive Date: 20200804
  Receipt Date: 20200812
  Transmission Date: 20201103
  Serious: Yes (Life-Threatening, Hospitalization)
  Sender: FDA-Public Use
  Company Number: CN-GE HEALTHCARE LIFE SCIENCES-2020CSU003379

PATIENT

DRUGS (4)
  1. VISIPAQUE [Suspect]
     Active Substance: IODIXANOL
     Indication: COMPUTERISED TOMOGRAM NECK
  2. VISIPAQUE [Suspect]
     Active Substance: IODIXANOL
     Indication: COMPUTERISED TOMOGRAM HEAD
     Dosage: 70 ML, SINGLE
     Route: 042
     Dates: start: 20200724, end: 20200724
  3. VISIPAQUE [Suspect]
     Active Substance: IODIXANOL
     Indication: ROAD TRAFFIC ACCIDENT
  4. VISIPAQUE [Suspect]
     Active Substance: IODIXANOL
     Indication: SPINAL FRACTURE

REACTIONS (7)
  - Urinary incontinence [Unknown]
  - Hypoaesthesia [Recovering/Resolving]
  - Malaise [Recovering/Resolving]
  - Blood pressure abnormal [Unknown]
  - Heart rate abnormal [Unknown]
  - Pyrexia [Recovering/Resolving]
  - Restlessness [Recovering/Resolving]

NARRATIVE: CASE EVENT DATE: 20200724
